FAERS Safety Report 8493306-0 (Version None)
Quarter: 2012Q3

REPORT INFORMATION
  Report Type: 
  Country: None (occurrence: None)
  Receive Date: 20120706
  Receipt Date: 20120703
  Transmission Date: 20120928
  Serious: No
  Sender: FDA-Public Use
  Company Number: US-PFIZER INC-2012140412

PATIENT
  Sex: Male
  Weight: 81 kg

DRUGS (2)
  1. ACIPHEX [Concomitant]
     Dosage: UNK
  2. LIPITOR [Suspect]
     Indication: BLOOD CHOLESTEROL INCREASED
     Dosage: 20 MG, 1X/DAY
     Route: 048
     Dates: start: 20050101

REACTIONS (2)
  - MYALGIA [None]
  - FLANK PAIN [None]
